FAERS Safety Report 9689037 (Version 2)
Quarter: 2013Q4

REPORT INFORMATION
  Report Type: Spontaneous
  Country: SE (occurrence: SE)
  Receive Date: 20131114
  Receipt Date: 20131120
  Transmission Date: 20140711
  Serious: Yes (Hospitalization)
  Sender: FDA-Public Use
  Company Number: SE-PFIZER INC-2013323001

PATIENT
  Age: 51 Year
  Sex: Female

DRUGS (6)
  1. LYRICA [Suspect]
     Dosage: UNK
     Dates: start: 20070321
  2. OLANZAPINE [Suspect]
     Dosage: 10 MG, 1X/DAY
     Route: 048
     Dates: start: 201310
  3. CITODON [Suspect]
     Dosage: UNK
     Dates: start: 20130814
  4. BEHEPAN [Concomitant]
     Dosage: 1 MG, 1X/DAY
     Route: 048
     Dates: start: 20100215, end: 20131015
  5. PROPAVAN [Concomitant]
     Dosage: 50 MG, 2X/DAY
     Route: 048
     Dates: start: 20130927, end: 20131015
  6. MIRENA [Concomitant]
     Dosage: 20 UG/24 HOURS
     Dates: start: 20110208, end: 20131015

REACTIONS (3)
  - Toxicity to various agents [Recovered/Resolved]
  - Fatigue [Recovered/Resolved]
  - Confusional state [Recovered/Resolved]
